FAERS Safety Report 21798826 (Version 1)
Quarter: 2022Q4

REPORT INFORMATION
  Report Type: Spontaneous
  Country: FR (occurrence: FR)
  Receive Date: 20221230
  Receipt Date: 20221230
  Transmission Date: 20230113
  Serious: Yes (Life-Threatening, Other)
  Sender: FDA-Public Use
  Company Number: FR-AFSSAPS-NT20190674

PATIENT
  Age: 62 Year
  Sex: Female
  Weight: 72.5 kg

DRUGS (3)
  1. ACETAMINOPHEN [Interacting]
     Active Substance: ACETAMINOPHEN
     Indication: Pain
     Dosage: UNK
     Route: 048
     Dates: start: 20190511
  2. TRAMADOL [Interacting]
     Active Substance: TRAMADOL
     Indication: Pain
     Dosage: UNK
     Route: 048
     Dates: start: 20190511
  3. FLUINDIONE [Interacting]
     Active Substance: FLUINDIONE
     Indication: Prophylaxis
     Dosage: UNK
     Route: 048
     Dates: start: 2015, end: 201905

REACTIONS (4)
  - Compartment syndrome [Recovered/Resolved with Sequelae]
  - International normalised ratio increased [Recovered/Resolved]
  - Anaemia [Recovered/Resolved with Sequelae]
  - Haematoma [Recovered/Resolved with Sequelae]

NARRATIVE: CASE EVENT DATE: 20190501
